FAERS Safety Report 13765525 (Version 1)
Quarter: 2017Q3

REPORT INFORMATION
  Report Type: Spontaneous
  Country: BR (occurrence: BR)
  Receive Date: 20170718
  Receipt Date: 20170718
  Transmission Date: 20171127
  Serious: Yes (Hospitalization)
  Sender: FDA-Public Use
  Company Number: BR-BAYER-2017-134416

PATIENT
  Age: 50 Year

DRUGS (2)
  1. MAGNEVISTAN [Suspect]
     Active Substance: GADOPENTETATE DIMEGLUMINE
     Dosage: UNK
     Route: 042
     Dates: start: 20170524, end: 20170524
  2. SCOPOLAMIN [Concomitant]
     Active Substance: SCOPOLAMINE

REACTIONS (3)
  - Generalised erythema [Recovered/Resolved]
  - Hypoaesthesia [Recovered/Resolved]
  - Urticaria [Recovered/Resolved]

NARRATIVE: CASE EVENT DATE: 20170524
